FAERS Safety Report 8181058-3 (Version None)
Quarter: 2012Q1

REPORT INFORMATION
  Report Type: 
  Country: None (occurrence: None)
  Receive Date: 20120301
  Receipt Date: 20120301
  Transmission Date: 20120608
  Serious: No
  Sender: FDA-Public Use
  Company Number: None

PATIENT
  Sex: Female
  Weight: 61.2356 kg

DRUGS (1)
  1. TRIAMCINOLONE ACETONIDE [Suspect]
     Dosage: 2 SPRAYS EACH NOSTRIL ONCE DAILY
     Dates: start: 20111115, end: 20111122

REACTIONS (2)
  - NASAL DISCOMFORT [None]
  - LACRIMATION INCREASED [None]
